FAERS Safety Report 10399198 (Version 1)
Quarter: 2014Q1

REPORT INFORMATION
  Report Type: Spontaneous
  Country: US (occurrence: None)
  Receive Date: 20130815
  Receipt Date: 20130815
  Transmission Date: 20141002
  Serious: Yes (Other)
  Sender: FDA-Public Use
  Company Number: ADR-2013-00725

PATIENT
  Age: 61 Year
  Sex: Female

DRUGS (3)
  1. BACLOFEN INTRATHECAL [Suspect]
     Indication: PAIN
     Dosage: 500.4MCG/DAY
  2. CLONIDINE [Concomitant]
  3. SUFENTANIL [Concomitant]

REACTIONS (1)
  - Pain [None]
